FAERS Safety Report 21046001 (Version 3)
Quarter: 2023Q1

REPORT INFORMATION
  Report Type: Spontaneous
  Country: US (occurrence: US)
  Receive Date: 20220706
  Receipt Date: 20230309
  Transmission Date: 20230417
  Serious: Yes (Hospitalization, Other)
  Sender: FDA-Public Use
  Company Number: US-BRISTOL-MYERS SQUIBB COMPANY-2022-063450

PATIENT
  Age: 70 Year
  Sex: Female

DRUGS (1)
  1. POMALYST [Suspect]
     Active Substance: POMALIDOMIDE
     Indication: Plasma cell myeloma
     Dosage: 1 CAPSULE BY MOUTH DAILY AS DIRECTED ON DAYS 1-21 OF 28 DAY CYCLE
     Route: 048
     Dates: start: 20170112

REACTIONS (7)
  - Dyspnoea [Unknown]
  - Asthma [Recovered/Resolved]
  - Acidosis [Unknown]
  - Pneumonia [Recovered/Resolved]
  - Bronchitis [Recovered/Resolved]
  - Lung disorder [Unknown]
  - Ulcer [Unknown]
